FAERS Safety Report 16391576 (Version 2)
Quarter: 2019Q3

REPORT INFORMATION
  Report Type: Spontaneous
  Country: US (occurrence: US)
  Receive Date: 20190605
  Receipt Date: 20190826
  Transmission Date: 20191004
  Serious: Yes (Death, Hospitalization)
  Sender: FDA-Public Use
  Company Number: US-ROCHE-2331509

PATIENT
  Age: 65 Year
  Sex: Male

DRUGS (1)
  1. XELODA [Suspect]
     Active Substance: CAPECITABINE
     Indication: PRODUCT USED FOR UNKNOWN INDICATION
     Route: 065

REACTIONS (3)
  - Colon cancer [Fatal]
  - Retroperitoneal cancer [Fatal]
  - Malignant peritoneal neoplasm [Fatal]

NARRATIVE: CASE EVENT DATE: 20180409
